FAERS Safety Report 25627598 (Version 1)
Quarter: 2025Q3

REPORT INFORMATION
  Report Type: Spontaneous
  Country: US (occurrence: None)
  Receive Date: 20250730
  Receipt Date: 20250730
  Transmission Date: 20251021
  Serious: Yes (Life-Threatening, Hospitalization)
  Sender: FDA-CTU
  Company Number: None

PATIENT
  Age: 60 Year
  Sex: Female
  Weight: 66.4 kg

DRUGS (1)
  1. YESCARTA [Suspect]
     Active Substance: AXICABTAGENE CILOLEUCEL
     Indication: Diffuse large B-cell lymphoma
     Route: 041
     Dates: start: 20250407, end: 20250407

REACTIONS (11)
  - Immune effector cell-associated neurotoxicity syndrome [None]
  - Encephalopathy [None]
  - Cerebral disorder [None]
  - Cytokine release syndrome [None]
  - Thrombocytopenia [None]
  - Haemoptysis [None]
  - Haemoglobin decreased [None]
  - Gastrointestinal wall thickening [None]
  - Gastritis [None]
  - Gastrointestinal ulcer haemorrhage [None]
  - Thrombosis [None]

NARRATIVE: CASE EVENT DATE: 20250413
